FAERS Safety Report 7298683-4 (Version None)
Quarter: 2011Q1

REPORT INFORMATION
  Report Type: 
  Country: None (occurrence: None)
  Receive Date: 20110217
  Receipt Date: 20110210
  Transmission Date: 20110831
  Serious: Yes (Hospitalization, Other)
  Sender: FDA-Public Use
  Company Number: US-JNJFOC-20110200393

PATIENT
  Sex: Female
  Weight: 63.5 kg

DRUGS (1)
  1. TOPAMAX [Suspect]
     Indication: MIGRAINE PROPHYLAXIS
     Route: 048

REACTIONS (19)
  - HERPES VIRUS INFECTION [None]
  - ABNORMAL LOSS OF WEIGHT [None]
  - PARAESTHESIA [None]
  - DEHYDRATION [None]
  - ANXIETY [None]
  - CREPITATIONS [None]
  - DISTURBANCE IN ATTENTION [None]
  - CHOLELITHIASIS [None]
  - DEPRESSION [None]
  - PRODUCT QUALITY ISSUE [None]
  - MIGRAINE [None]
  - HEPATOMEGALY [None]
  - VISION BLURRED [None]
  - PHOTOPHOBIA [None]
  - INSOMNIA [None]
  - HALLUCINATION, AUDITORY [None]
  - JOINT CREPITATION [None]
  - FATIGUE [None]
  - METABOLIC DISORDER [None]
